FAERS Safety Report 18207652 (Version 1)
Quarter: 2020Q3

REPORT INFORMATION
  Report Type: Spontaneous
  Country: US (occurrence: US)
  Receive Date: 20200828
  Receipt Date: 20200828
  Transmission Date: 20201103
  Serious: Yes (Hospitalization, Other)
  Sender: FDA-Public Use
  Company Number: US-PFIZER INC-2020279370

PATIENT
  Age: 62 Year
  Sex: Male
  Weight: 112.04 kg

DRUGS (2)
  1. INLYTA [Suspect]
     Active Substance: AXITINIB
     Indication: RENAL CELL CARCINOMA
     Dosage: 3 MG, 2X/DAY (DIRECTION/DOSING INSTRUCTIONS: TAKE 3 (THREE) MG PO BID^/INLYTA 6MG 30?DAY SUPPLY)
     Route: 048
     Dates: start: 202007
  2. LOVENOX [LEVOFLOXACIN] [Concomitant]
     Active Substance: LEVOFLOXACIN
     Indication: PULMONARY EMBOLISM
     Dosage: UNK

REACTIONS (2)
  - Pulmonary embolism [Recovered/Resolved]
  - Dysphonia [Not Recovered/Not Resolved]

NARRATIVE: CASE EVENT DATE: 20200807
